FAERS Safety Report 14835534 (Version 4)
Quarter: 2018Q2

REPORT INFORMATION
  Report Type: Report from Study
  Country: None (occurrence: US)
  Receive Date: 20180502
  Receipt Date: 20180530
  Transmission Date: 20180711
  Serious: Yes (Other)
  Sender: FDA-Public Use
  Company Number: US-ABBVIE-18K-163-2337430-00

PATIENT
  Age: 28 Year
  Sex: Male
  Weight: 82.17 kg

DRUGS (3)
  1. NAPROXEN. [Concomitant]
     Active Substance: NAPROXEN
     Indication: PRODUCT USED FOR UNKNOWN INDICATION
  2. HUMIRA [Suspect]
     Active Substance: ADALIMUMAB
     Indication: CROHN^S DISEASE
     Route: 058
     Dates: start: 20180118, end: 2018
  3. HUMIRA [Suspect]
     Active Substance: ADALIMUMAB
     Route: 058
     Dates: start: 2018

REACTIONS (6)
  - Loss of consciousness [Recovered/Resolved]
  - Feeling abnormal [Unknown]
  - Dehydration [Recovered/Resolved]
  - Anaemia [Unknown]
  - Gastrointestinal haemorrhage [Recovering/Resolving]
  - Haematochezia [Unknown]

NARRATIVE: CASE EVENT DATE: 2018
